FAERS Safety Report 5067460-7 (Version None)
Quarter: 2006Q3

REPORT INFORMATION
  Report Type: 
  Country: None (occurrence: None)
  Receive Date: 20060727
  Receipt Date: 20060714
  Transmission Date: 20061208
  Serious: Yes (Other)
  Sender: FDA-Public Use
  Company Number: 2006078342

PATIENT
  Age: 81 Year
  Sex: Male
  Weight: 45 kg

DRUGS (2)
  1. TOLTERODINE TARTRATE [Suspect]
     Indication: NOCTURIA
     Dosage: 4 MG (4 MG, 1 IN 1 D), ORAL
     Route: 048
     Dates: start: 20060613, end: 20060614
  2. NORVASC [Suspect]
     Indication: HYPERTENSION
     Dosage: 5 MG, ORAL
     Route: 048
     Dates: start: 20060207

REACTIONS (2)
  - URINARY RETENTION [None]
  - VISION BLURRED [None]
